FAERS Safety Report 10174065 (Version 1)
Quarter: 2014Q2

REPORT INFORMATION
  Report Type: Spontaneous
  Country: US (occurrence: US)
  Receive Date: 20140515
  Receipt Date: 20140515
  Transmission Date: 20141212
  Serious: Yes (Death, Hospitalization, Other)
  Sender: FDA-Public Use
  Company Number: US-ASTRAZENECA-2014SE33110

PATIENT
  Age: 59 Year
  Sex: Male

DRUGS (3)
  1. BRILINTA [Suspect]
     Indication: STENT PLACEMENT
     Route: 048
     Dates: start: 20140502
  2. BRILINTA [Suspect]
     Indication: STENT PLACEMENT
     Route: 048
     Dates: end: 20140510
  3. ASPIRIN [Suspect]

REACTIONS (7)
  - Death [Fatal]
  - Body temperature decreased [Unknown]
  - Gastric disorder [Unknown]
  - Endotracheal intubation complication [Unknown]
  - Blood pressure decreased [Unknown]
  - Nervous system disorder [Unknown]
  - Drug dose omission [Unknown]
